FAERS Safety Report 9353129 (Version 1)
Quarter: 2013Q2

REPORT INFORMATION
  Report Type: Spontaneous
  Country: CA (occurrence: CA)
  Receive Date: 20130618
  Receipt Date: 20130618
  Transmission Date: 20140414
  Serious: Yes (Other)
  Sender: FDA-Public Use
  Company Number: CA-ROCHE-1235750

PATIENT
  Age: 31 Year
  Sex: Female

DRUGS (1)
  1. ACCUTANE [Suspect]
     Indication: PRODUCT USED FOR UNKNOWN INDICATION
     Route: 065

REACTIONS (10)
  - Activities of daily living impaired [Unknown]
  - Asthenia [Unknown]
  - Back pain [Unknown]
  - Depression [Unknown]
  - Dysstasia [Unknown]
  - Fatigue [Unknown]
  - Flank pain [Unknown]
  - Myalgia [Unknown]
  - Pain in extremity [Unknown]
  - Suicidal ideation [Unknown]
